FAERS Safety Report 5703049-1 (Version None)
Quarter: 2008Q2

REPORT INFORMATION
  Report Type: 
  Country: None (occurrence: None)
  Receive Date: 20080408
  Receipt Date: 20080328
  Transmission Date: 20081010
  Serious: Yes (Hospitalization)
  Sender: FDA-Public Use
  Company Number: 2007-04170

PATIENT
  Age: 61 Year
  Sex: Male
  Weight: 87 kg

DRUGS (2)
  1. VELCADE [Suspect]
     Indication: WALDENSTROM'S MACROGLOBULINAEMIA
     Dosage: 2.00 MG, INTRAVENOUS
     Route: 042
     Dates: start: 20070703, end: 20071113
  2. DEXAMETHASONE TAB [Suspect]
     Indication: DRUG USE FOR UNKNOWN INDICATION
     Dosage: 40 MG, ORAL
     Route: 048
     Dates: start: 20070701

REACTIONS (6)
  - DERMATOSIS [None]
  - DISTURBANCE IN ATTENTION [None]
  - FATIGUE [None]
  - LISTLESS [None]
  - PSYCHIATRIC SYMPTOM [None]
  - SOMNOLENCE [None]
